FAERS Safety Report 26141077 (Version 1)
Quarter: 2025Q4

REPORT INFORMATION
  Report Type: Spontaneous
  Country: EU (occurrence: EU)
  Receive Date: 20251210
  Receipt Date: 20251210
  Transmission Date: 20260117
  Serious: Yes (Hospitalization)
  Sender: MYLAN
  Company Number: None

PATIENT
  Age: 61 Year
  Sex: Male
  Weight: 109 kg

DRUGS (12)
  1. CLOZAPINE [Suspect]
     Active Substance: CLOZAPINE
     Indication: Pain
     Dosage: 100 MILLIGRAM, QD
  2. CLOZAPINE [Suspect]
     Active Substance: CLOZAPINE
     Dosage: 100 MILLIGRAM, QD
     Route: 048
  3. CLOZAPINE [Suspect]
     Active Substance: CLOZAPINE
     Dosage: 100 MILLIGRAM, QD
     Route: 048
  4. CLOZAPINE [Suspect]
     Active Substance: CLOZAPINE
     Dosage: 100 MILLIGRAM, QD
  5. SKENAN [Suspect]
     Active Substance: MORPHINE SULFATE
     Indication: Pain
     Dosage: 20 MILLIGRAM, QD
     Dates: start: 20251021
  6. SKENAN [Suspect]
     Active Substance: MORPHINE SULFATE
     Dosage: 20 MILLIGRAM, QD
     Route: 048
     Dates: start: 20251021
  7. SKENAN [Suspect]
     Active Substance: MORPHINE SULFATE
     Dosage: 20 MILLIGRAM, QD
     Route: 048
     Dates: start: 20251021
  8. SKENAN [Suspect]
     Active Substance: MORPHINE SULFATE
     Dosage: 20 MILLIGRAM, QD
     Dates: start: 20251021
  9. MORPHINE SULFATE [Suspect]
     Active Substance: MORPHINE SULFATE
     Indication: Pain
     Dosage: UNK UNK, PRN (IF NEEDED)
  10. MORPHINE SULFATE [Suspect]
     Active Substance: MORPHINE SULFATE
     Dosage: UNK UNK, PRN (IF NEEDED)
     Route: 048
  11. MORPHINE SULFATE [Suspect]
     Active Substance: MORPHINE SULFATE
     Dosage: UNK UNK, PRN (IF NEEDED)
     Route: 048
  12. MORPHINE SULFATE [Suspect]
     Active Substance: MORPHINE SULFATE
     Dosage: UNK UNK, PRN (IF NEEDED)

REACTIONS (4)
  - Abdominal pain [Not Recovered/Not Resolved]
  - Constipation [Not Recovered/Not Resolved]
  - Nausea [Not Recovered/Not Resolved]
  - Vomiting [Not Recovered/Not Resolved]

NARRATIVE: CASE EVENT DATE: 20251024
